FAERS Safety Report 22523399 (Version 1)
Quarter: 2023Q2

REPORT INFORMATION
  Report Type: Report from Study
  Country: BG (occurrence: BG)
  Receive Date: 20230606
  Receipt Date: 20230606
  Transmission Date: 20230721
  Serious: Yes (Hospitalization)
  Sender: FDA-Public Use
  Company Number: BG-ABBVIE-5182170

PATIENT
  Age: 46 Year
  Sex: Male

DRUGS (1)
  1. HUMIRA [Suspect]
     Active Substance: ADALIMUMAB
     Indication: Ankylosing spondylitis
     Route: 058
     Dates: start: 201707

REACTIONS (6)
  - Diarrhoea [Recovered/Resolved]
  - Arthropathy [Unknown]
  - Sacroiliitis [Unknown]
  - Abdominal pain [Recovered/Resolved]
  - Colitis ulcerative [Unknown]
  - Gastrointestinal disorder [Unknown]
